FAERS Safety Report 21528747 (Version 1)
Quarter: 2022Q4

REPORT INFORMATION
  Report Type: Other
  Country: SA (occurrence: None)
  Receive Date: 20221031
  Receipt Date: 20221031
  Transmission Date: 20230113
  Serious: Yes (Death)
  Sender: FDA-Public Use
  Company Number: SA-ROCHE-3209524

PATIENT
  Sex: Female

DRUGS (2)
  1. ENTRECTINIB [Suspect]
     Active Substance: ENTRECTINIB
     Indication: Soft tissue sarcoma
     Route: 065
  2. ENTRECTINIB [Suspect]
     Active Substance: ENTRECTINIB
     Indication: Metastases to lung

REACTIONS (1)
  - Death [Fatal]
